FAERS Safety Report 23839059 (Version 1)
Quarter: 2024Q2

REPORT INFORMATION
  Report Type: Spontaneous
  Country: US (occurrence: US)
  Receive Date: 20240509
  Receipt Date: 20240509
  Transmission Date: 20240716
  Serious: No
  Sender: FDA-Public Use
  Company Number: US-PFIZER INC-PV202400059911

PATIENT
  Sex: Male

DRUGS (1)
  1. PAXLOVID [Suspect]
     Active Substance: NIRMATRELVIR\RITONAVIR
     Indication: COVID-19 treatment
     Dosage: UNK
     Dates: start: 202207

REACTIONS (8)
  - Hiccups [Recovered/Resolved]
  - Nausea [Recovered/Resolved]
  - Chills [Recovered/Resolved]
  - Gastrointestinal mucosal disorder [Recovered/Resolved]
  - Retching [Recovered/Resolved]
  - Hyperaesthesia [Recovering/Resolving]
  - Sinus congestion [Recovered/Resolved]
  - Upper respiratory tract congestion [Recovered/Resolved]
